FAERS Safety Report 7505673-2 (Version None)
Quarter: 2011Q2

REPORT INFORMATION
  Report Type: 
  Country: None (occurrence: None)
  Receive Date: 20110404
  Receipt Date: 20100430
  Transmission Date: 20111010
  Serious: Yes (Other)
  Sender: FDA-Public Use
  Company Number: 009668

PATIENT
  Age: 19 Year
  Sex: Male

DRUGS (6)
  1. BUSULFEX [Suspect]
     Dosage: 5 MG/KG, INTRAVENOUS
     Route: 042
  2. SIROLIMUS [Concomitant]
  3. PALIFERMIN (PALIFERMIN) [Concomitant]
  4. AMBISOME [Concomitant]
  5. MICAFUNGIN (MICAFUNGIN) [Concomitant]
  6. VORICONAZOLE [Concomitant]

REACTIONS (4)
  - NEUTROPENIA [None]
  - MUCOSAL INFLAMMATION [None]
  - THROMBOCYTOPENIA [None]
  - FEBRILE NEUTROPENIA [None]
